FAERS Safety Report 15871781 (Version 2)
Quarter: 2019Q1

REPORT INFORMATION
  Report Type: Spontaneous
  Country: CN (occurrence: CN)
  Receive Date: 20190126
  Receipt Date: 20190226
  Transmission Date: 20190417
  Serious: Yes (Death, Life-Threatening)
  Sender: FDA-Public Use
  Company Number: CN-IMPAX LABORATORIES, LLC-2019-IPXL-00300

PATIENT
  Age: 26 Month
  Sex: Female

DRUGS (4)
  1. PREDNISOLONE. [Suspect]
     Active Substance: PREDNISOLONE
     Indication: INFANTILE HAEMANGIOMA
     Dosage: UNK
     Route: 065
  2. VINCRISTINE [Suspect]
     Active Substance: VINCRISTINE
     Indication: INFANTILE HAEMANGIOMA
     Dosage: UNK
     Route: 065
  3. PROPRANOLOL HYDROCHLORIDE IR [Suspect]
     Active Substance: PROPRANOLOL HYDROCHLORIDE
     Indication: INFANTILE HAEMANGIOMA
     Dosage: 1 MILLIGRAM/KILOGRAM, 1 /DAY
     Route: 048
  4. PROPRANOLOL HYDROCHLORIDE IR [Suspect]
     Active Substance: PROPRANOLOL HYDROCHLORIDE
     Dosage: 2 MILLIGRAM/KILOGRAM, 1 /DAY
     Route: 048

REACTIONS (4)
  - Abdominal compartment syndrome [Fatal]
  - Cardiac failure congestive [Fatal]
  - Hypothyroidism [Fatal]
  - Drug ineffective for unapproved indication [Unknown]
